FAERS Safety Report 10920722 (Version 1)
Quarter: 2015Q1

REPORT INFORMATION
  Report Type: Spontaneous
  Country: GB (occurrence: GB)
  Receive Date: 20150317
  Receipt Date: 20150317
  Transmission Date: 20150721
  Serious: No
  Sender: FDA-Public Use
  Company Number: GB-JNJFOC-20150303658

PATIENT
  Sex: Female

DRUGS (1)
  1. DURAGESIC [Suspect]
     Active Substance: FENTANYL
     Indication: PRODUCT USED FOR UNKNOWN INDICATION
     Dosage: 12 UG/HR AND 25 UG/HR
     Route: 062

REACTIONS (2)
  - Wrong technique in drug usage process [Unknown]
  - Product adhesion issue [Unknown]
